FAERS Safety Report 9300779 (Version 2)
Quarter: 2013Q2

REPORT INFORMATION
  Report Type: Report from Study
  Country: DE (occurrence: DE)
  Receive Date: 20130521
  Receipt Date: 20130521
  Transmission Date: 20140414
  Serious: Yes (Hospitalization)
  Sender: FDA-Public Use
  Company Number: DE-SHIRE-CQT2-2008-00020

PATIENT
  Age: 76 Year
  Sex: Female
  Weight: 70 kg

DRUGS (9)
  1. HYDROXYUREA [Suspect]
     Indication: ESSENTIAL THROMBOCYTHAEMIA
     Dosage: 500 MG, 500 MG TO 1500 MG PER DAY - AS REQUIRED
     Route: 048
     Dates: start: 20050503, end: 20071028
  2. HYDROXYUREA [Suspect]
     Dosage: 500 MG TO 1500 MG PER DAY - AS REQUIRED
     Route: 048
     Dates: start: 20021217, end: 20050207
  3. HYDROXYUREA [Suspect]
     Dosage: 500 MG TO 1500 MG PER DAY - AS REQUIRED
     Route: 048
     Dates: start: 20080228
  4. 422 (ANAGRELIDE) [Suspect]
     Dosage: .5 MG, 1 TO 3 CAPSULES PER DAY - AS REQUIRED
     Route: 048
     Dates: start: 20050208, end: 20050502
  5. 422 (ANAGRELIDE) [Suspect]
     Dosage: .5 MG, 1 TO 6 CAPSULES PER DAY - AS REQUIRED
     Route: 048
     Dates: start: 20071029, end: 20080227
  6. ACETYLSALICYLIC ACID [Suspect]
     Indication: ESSENTIAL THROMBOCYTHAEMIA
     Dosage: 100 MG, 1X/DAY:QD
     Route: 048
     Dates: start: 20020405, end: 20030114
  7. XIPAMID [Concomitant]
     Indication: DIURETIC THERAPY
     Dosage: 20 MG, 1X/DAY:QD
     Route: 048
     Dates: start: 2002
  8. BISOPROLOL [Concomitant]
     Indication: CARDIOVASCULAR DISORDER
     Dosage: 2.5 MG, 1X/DAY:QD
     Route: 048
     Dates: start: 20060329
  9. OMEP [Concomitant]
     Indication: GASTROOESOPHAGEAL REFLUX DISEASE
     Dosage: 40 MG, 1X/DAY:QD
     Route: 048
     Dates: start: 20061213

REACTIONS (1)
  - Basal cell carcinoma [Recovered/Resolved]
